FAERS Safety Report 11406892 (Version 2)
Quarter: 2015Q3

REPORT INFORMATION
  Report Type: Spontaneous
  Country: JP (occurrence: JP)
  Receive Date: 20150821
  Receipt Date: 20150827
  Transmission Date: 20151125
  Serious: Yes (Death)
  Sender: FDA-Public Use
  Company Number: JP-PFIZER INC-2015275922

PATIENT
  Age: 60 Year
  Sex: Female

DRUGS (5)
  1. MEROPEN [Concomitant]
     Active Substance: MEROPENEM
  2. VANCOMYCIN [Concomitant]
     Active Substance: VANCOMYCIN
  3. TYGACIL [Suspect]
     Active Substance: TIGECYCLINE
     Dosage: 50 MG, 2X/DAY
     Route: 041
     Dates: start: 20150813, end: 20150815
  4. COLISTIN [Concomitant]
     Active Substance: COLISTIN
  5. ANAEMETRO [Concomitant]
     Active Substance: METRONIDAZOLE

REACTIONS (1)
  - Abdominal abscess [Fatal]
